FAERS Safety Report 8134587 (Version 8)
Quarter: 2014Q4

REPORT INFORMATION
  Report Type: Report from Study
  Country: DE (occurrence: DE)
  Receive Date: 20110913
  Receipt Date: 20141125
  Transmission Date: 20150529
  Serious: Yes (Other)
  Sender: FDA-Public Use
  Company Number: PHHY2011DE74750

PATIENT
  Age: 27 Year
  Sex: Female

DRUGS (2)
  1. EXTAVIA [Suspect]
     Active Substance: INTERFERON BETA-1B
     Dosage: 250 UG/ML, QOD
     Route: 058
     Dates: start: 20110927, end: 20141020
  2. EXTAVIA [Suspect]
     Active Substance: INTERFERON BETA-1B
     Indication: MULTIPLE SCLEROSIS
     Dosage: 250 UG/ML, QOD
     Route: 058
     Dates: start: 201010, end: 201109

REACTIONS (6)
  - Central nervous system lesion [Not Recovered/Not Resolved]
  - Ovarian cyst [Recovered/Resolved]
  - Optic neuritis [Recovered/Resolved]
  - Herpes virus infection [Not Recovered/Not Resolved]
  - Multiple sclerosis relapse [Recovering/Resolving]
  - Hypothyroidism [Not Recovered/Not Resolved]

NARRATIVE: CASE EVENT DATE: 20110601
